FAERS Safety Report 6830153-7 (Version None)
Quarter: 2010Q3

REPORT INFORMATION
  Report Type: 
  Country: None (occurrence: None)
  Receive Date: 20100711
  Receipt Date: 20100530
  Transmission Date: 20110219
  Serious: No
  Sender: FDA-Public Use
  Company Number: US-ALLERGAN-1007068US

PATIENT
  Sex: Female

DRUGS (6)
  1. LATISSE [Suspect]
     Indication: GROWTH OF EYELASHES
     Dosage: UNK
  2. NEURONTIN [Concomitant]
     Indication: FIBROMYALGIA
     Dosage: UNK
  3. AMBIEN CR [Concomitant]
     Dosage: UNK
  4. LEXAPRO [Concomitant]
     Indication: DEPRESSION
  5. ATEROL [Concomitant]
  6. METHADOSE [Concomitant]
     Indication: FIBROMYALGIA
     Dosage: UNK

REACTIONS (1)
  - DRUG INEFFECTIVE [None]
